FAERS Safety Report 8175966-7 (Version None)
Quarter: 2012Q1

REPORT INFORMATION
  Report Type: 
  Country: None (occurrence: None)
  Receive Date: 20120301
  Receipt Date: 20120227
  Transmission Date: 20120608
  Serious: No
  Sender: FDA-Public Use
  Company Number: US-PFIZER INC-2012051618

PATIENT
  Sex: Female
  Weight: 52.2 kg

DRUGS (2)
  1. LYRICA [Suspect]
     Indication: PAIN
     Dosage: 100 MG, 4X/DAY
     Route: 048
     Dates: start: 20111201
  2. LYRICA [Suspect]
     Indication: SCOLIOSIS

REACTIONS (1)
  - DRUG INEFFECTIVE [None]
